FAERS Safety Report 6756005-9 (Version None)
Quarter: 2010Q2

REPORT INFORMATION
  Report Type: 
  Country: None (occurrence: None)
  Receive Date: 20100604
  Receipt Date: 20100527
  Transmission Date: 20101027
  Serious: Yes (Other)
  Sender: FDA-Public Use
  Company Number: BR-GENZYME-CERZ-1001319

PATIENT
  Age: 56 Year
  Sex: Male

DRUGS (2)
  1. CEREZYME [Suspect]
     Indication: GAUCHER'S DISEASE
     Dosage: 30 U/KG, UNK
     Route: 042
  2. CEREZYME [Suspect]
     Dosage: 15 U/KG, UNK
     Route: 042

REACTIONS (1)
  - INFUSION RELATED REACTION [None]
